FAERS Safety Report 8455527-2 (Version None)
Quarter: 2012Q2

REPORT INFORMATION
  Report Type: 
  Country: None (occurrence: None)
  Receive Date: 20120621
  Receipt Date: 20120614
  Transmission Date: 20120825
  Serious: Yes (Hospitalization, Other)
  Sender: FDA-Public Use
  Company Number: US-PFIZER INC-2011084794

PATIENT
  Sex: Male
  Weight: 81.633 kg

DRUGS (17)
  1. BUPROPION HYDROCHLORIDE [Concomitant]
     Dosage: 150 MG, 2X/DAY
     Route: 048
  2. EXELON [Concomitant]
     Dosage: 4.5 MG, 2X/DAY
     Route: 048
  3. FLOMAX [Concomitant]
     Dosage: 0.4 MG, 2X/DAY
     Route: 048
  4. ASTELIN [Concomitant]
  5. TOVIAZ [Suspect]
     Indication: URINARY INCONTINENCE
     Dosage: 4 MG, 1X/DAY
     Route: 048
     Dates: start: 20110314, end: 20110316
  6. CRESTOR [Concomitant]
     Dosage: 5 MG, 1X/DAY BEFORE BED
     Route: 048
  7. LORTAB [Concomitant]
     Indication: PAIN
     Dosage: 7.5 MG-500 MG, 1 TAB AS NEEDED
     Route: 048
  8. LEVOTHYROXINE [Concomitant]
     Dosage: 50 UG, 1X/DAY
     Route: 048
  9. ASPIRIN [Concomitant]
     Dosage: 81 MG, 1X/DAY
     Route: 048
  10. FISH OIL [Concomitant]
     Dosage: UNK
     Route: 048
  11. LOTRISONE [Concomitant]
     Dosage: TWICE A DAY TO AFFECTED
     Route: 061
  12. COD-LIVER OIL [Concomitant]
     Dosage: UNK
     Route: 048
  13. PLAVIX [Concomitant]
     Dosage: 75 MG, 1X/DAY
     Route: 048
  14. STARLIX [Concomitant]
     Indication: DIABETES MELLITUS
     Dosage: 60 MG, 3X/DAY
     Route: 048
  15. CLOTRIMAZOLE [Concomitant]
     Dosage: 1 APPLICATION TWICE A DAY BY MOUTH
     Route: 061
  16. RANITIDINE [Concomitant]
     Dosage: 150 MG, 2X/DAY
     Route: 048
  17. ENABLEX [Concomitant]
     Dosage: 15 MG, 1X/DAY
     Route: 048

REACTIONS (3)
  - GLOMERULAR FILTRATION RATE DECREASED [None]
  - URINARY RETENTION [None]
  - PYELONEPHRITIS [None]
